FAERS Safety Report 20946573 (Version 3)
Quarter: 2023Q1

REPORT INFORMATION
  Report Type: Report from Study
  Country: US (occurrence: None)
  Receive Date: 20220610
  Receipt Date: 20230117
  Transmission Date: 20230417
  Serious: Yes (Other)
  Sender: FDA-Public Use
  Company Number: 2022A014999

PATIENT
  Age: 65 Year
  Sex: Female

DRUGS (53)
  1. DURVALUMAB [Suspect]
     Active Substance: DURVALUMAB
     Indication: Endometrial cancer
     Route: 042
     Dates: start: 20210414, end: 20210728
  2. DURVALUMAB [Suspect]
     Active Substance: DURVALUMAB
     Indication: Endometrial cancer
     Dosage: 1500.0MG ONCE/SINGLE ADMINISTRATION
     Route: 042
     Dates: start: 20210818, end: 20210818
  3. DURVALUMAB [Suspect]
     Active Substance: DURVALUMAB
     Indication: Endometrial cancer
     Dosage: 1500.0MG ONCE/SINGLE ADMINISTRATION
     Route: 042
     Dates: start: 20211013, end: 20211208
  4. OLAPARIB [Suspect]
     Active Substance: OLAPARIB
     Indication: Endometrial cancer
     Route: 048
     Dates: start: 20210818, end: 20210823
  5. OLAPARIB [Suspect]
     Active Substance: OLAPARIB
     Indication: Endometrial cancer
     Route: 048
     Dates: start: 20211013, end: 20211013
  6. OLAPARIB [Suspect]
     Active Substance: OLAPARIB
     Indication: Endometrial cancer
     Route: 048
     Dates: start: 20211014, end: 20211109
  7. OLAPARIB [Suspect]
     Active Substance: OLAPARIB
     Indication: Endometrial cancer
     Route: 048
     Dates: start: 20211110, end: 20211110
  8. OLAPARIB [Suspect]
     Active Substance: OLAPARIB
     Indication: Endometrial cancer
     Route: 048
     Dates: start: 20211111, end: 20211203
  9. OLAPARIB [Suspect]
     Active Substance: OLAPARIB
     Indication: Endometrial cancer
     Route: 048
     Dates: start: 20211204, end: 20211205
  10. OLAPARIB [Suspect]
     Active Substance: OLAPARIB
     Indication: Endometrial cancer
     Route: 048
     Dates: start: 20211206, end: 20211207
  11. OLAPARIB [Suspect]
     Active Substance: OLAPARIB
     Indication: Endometrial cancer
     Route: 048
     Dates: start: 20211208, end: 20211208
  12. OLAPARIB [Suspect]
     Active Substance: OLAPARIB
     Indication: Endometrial cancer
     Route: 048
     Dates: start: 20211209, end: 20211227
  13. OLAPARIB [Suspect]
     Active Substance: OLAPARIB
     Indication: Endometrial cancer
     Route: 048
     Dates: start: 20211228, end: 20211228
  14. OLAPARIB [Suspect]
     Active Substance: OLAPARIB
     Indication: Endometrial cancer
     Route: 048
     Dates: start: 20211229, end: 20220104
  15. OLAPARIB [Suspect]
     Active Substance: OLAPARIB
     Indication: Endometrial cancer
     Route: 048
     Dates: start: 20220105, end: 20220105
  16. OLAPARIB [Suspect]
     Active Substance: OLAPARIB
     Indication: Endometrial cancer
     Route: 048
     Dates: start: 20220302, end: 20220302
  17. OLAPARIB [Suspect]
     Active Substance: OLAPARIB
     Indication: Endometrial cancer
     Route: 048
     Dates: start: 20220303, end: 20220330
  18. OLAPARIB [Suspect]
     Active Substance: OLAPARIB
     Indication: Endometrial cancer
     Route: 048
     Dates: start: 20220331, end: 20220331
  19. OLAPARIB [Suspect]
     Active Substance: OLAPARIB
     Indication: Endometrial cancer
     Route: 048
     Dates: start: 20220428, end: 20220428
  20. OLAPARIB [Suspect]
     Active Substance: OLAPARIB
     Indication: Endometrial cancer
     Route: 048
     Dates: start: 20220429, end: 20220525
  21. OLAPARIB [Suspect]
     Active Substance: OLAPARIB
     Indication: Endometrial cancer
     Route: 048
     Dates: start: 20220526, end: 20220526
  22. CARBOPLATIN [Concomitant]
     Active Substance: CARBOPLATIN
     Indication: Endometrial cancer
     Dosage: 5 AUC, EVERY THREE WEEKS
     Route: 042
     Dates: start: 20210414, end: 20210728
  23. PACLITAXEL [Concomitant]
     Active Substance: PACLITAXEL
     Indication: Endometrial cancer
     Route: 042
     Dates: start: 20210414, end: 20210728
  24. ALBUTEROL SULFATE [Concomitant]
     Active Substance: ALBUTEROL SULFATE
     Indication: Asthma
     Dosage: 2 PUFFS AS NEEDED
     Route: 055
     Dates: start: 196901
  25. ASPIRIN [Concomitant]
     Active Substance: ASPIRIN
     Indication: Transient ischaemic attack
     Route: 048
     Dates: start: 200201
  26. ASPIRIN [Concomitant]
     Active Substance: ASPIRIN
     Indication: Transient ischaemic attack
     Dosage: 300.0MG ONCE/SINGLE ADMINISTRATION
     Route: 054
     Dates: start: 20210827, end: 20210827
  27. BUDESONIDE [Concomitant]
     Active Substance: BUDESONIDE
     Indication: Rhinitis allergic
     Route: 045
     Dates: start: 200501
  28. ALLEGRA [Concomitant]
     Active Substance: FEXOFENADINE HYDROCHLORIDE
     Indication: Rhinitis allergic
     Dosage: 30.0MG AS REQUIRED
     Route: 048
     Dates: start: 200501
  29. MONTELUKAST [Concomitant]
     Active Substance: MONTELUKAST SODIUM
     Indication: Asthma
     Route: 048
     Dates: start: 201001
  30. BUMETANIDE [Concomitant]
     Active Substance: BUMETANIDE
     Indication: Hypertension
     Route: 048
     Dates: start: 202009
  31. BUMETANIDE [Concomitant]
     Active Substance: BUMETANIDE
     Indication: Hypertension
     Route: 048
     Dates: start: 20220421, end: 20220706
  32. VITAMIN D3 [Concomitant]
     Active Substance: CHOLECALCIFEROL
     Indication: General physical health deterioration
     Dosage: 1000 UNIT DAILY
     Route: 048
     Dates: start: 201201
  33. CLOBETASOL [Concomitant]
     Active Substance: CLOBETASOL
     Indication: Scleroderma
     Dosage: 1 UNIT AS NEEDED
     Route: 061
     Dates: start: 201401
  34. HYDROXYZINE HYDROCHLORIDE [Concomitant]
     Active Substance: HYDROXYZINE HYDROCHLORIDE
     Indication: Rash maculo-papular
     Dosage: 25.0MG AS REQUIRED
     Route: 048
     Dates: start: 201001
  35. LORAZEPAM [Concomitant]
     Active Substance: LORAZEPAM
     Indication: Anxiety
     Dosage: 0.5MG AS REQUIRED
     Route: 048
     Dates: start: 200601
  36. TRIAMCINOLONE ACETONIDE [Concomitant]
     Active Substance: TRIAMCINOLONE ACETONIDE
     Indication: Pain
     Dosage: 1 UNIT TWO TIMES PER WEEK
     Route: 061
     Dates: start: 200701
  37. ATORVASTATIN [Concomitant]
     Active Substance: ATORVASTATIN
     Indication: Cerebrovascular accident
     Route: 048
     Dates: start: 20210827, end: 20211013
  38. ATORVASTATIN [Concomitant]
     Active Substance: ATORVASTATIN
     Indication: Cerebrovascular accident
     Route: 048
     Dates: start: 20211014
  39. BRILINTA [Concomitant]
     Active Substance: TICAGRELOR
     Indication: Cerebrovascular accident
     Route: 048
     Dates: start: 20210828, end: 20211012
  40. BRILINTA [Concomitant]
     Active Substance: TICAGRELOR
     Indication: Cerebrovascular accident
     Route: 048
     Dates: start: 20211013, end: 20220422
  41. LOSARTAN [Concomitant]
     Active Substance: LOSARTAN
     Indication: Hypertension
     Route: 048
     Dates: start: 20210830
  42. TRAMADOL [Concomitant]
     Active Substance: TRAMADOL
     Indication: Pain
     Dosage: 100.0MG AS REQUIRED
     Route: 048
     Dates: start: 199501, end: 20210827
  43. TRAMADOL [Concomitant]
     Active Substance: TRAMADOL
     Indication: Cerebrovascular accident
     Dosage: 100.0MG AS REQUIRED
     Route: 048
     Dates: start: 199501, end: 20210827
  44. TRAMADOL [Concomitant]
     Active Substance: TRAMADOL
     Indication: Pain
     Dosage: 100 MG, Q6H PRN AS REQUIRED
     Route: 048
     Dates: start: 20210828, end: 20211013
  45. TRAMADOL [Concomitant]
     Active Substance: TRAMADOL
     Indication: Cerebrovascular accident
     Dosage: 100 MG, Q6H PRN AS REQUIRED
     Route: 048
     Dates: start: 20210828, end: 20211013
  46. TRAMADOL [Concomitant]
     Active Substance: TRAMADOL
     Indication: Pain
     Dosage: 100.0MG AS REQUIRED
     Route: 048
     Dates: start: 20211014
  47. TRAMADOL [Concomitant]
     Active Substance: TRAMADOL
     Indication: Cerebrovascular accident
     Dosage: 100.0MG AS REQUIRED
     Route: 048
     Dates: start: 20211014
  48. ZOFRAN [Concomitant]
     Active Substance: ONDANSETRON HYDROCHLORIDE
     Indication: Nausea
     Dosage: 16.0MG ONCE/SINGLE ADMINISTRATION
     Route: 042
     Dates: start: 20210728, end: 20210728
  49. ZOFRAN [Concomitant]
     Active Substance: ONDANSETRON HYDROCHLORIDE
     Indication: Nausea
     Dosage: 8 MG, EVERY 8 HOURS/PRN ONCE/SINGLE ADMINISTRATION
     Route: 048
     Dates: start: 20210823
  50. ZOFRAN [Concomitant]
     Active Substance: ONDANSETRON HYDROCHLORIDE
     Indication: Nausea
     Dosage: 8.0MG ONCE/SINGLE ADMINISTRATION
     Route: 042
     Dates: start: 20220803, end: 20220803
  51. PROMETHAZINE [Concomitant]
     Active Substance: PROMETHAZINE HYDROCHLORIDE
     Indication: Nausea
     Dosage: 12.5MG AS REQUIRED
     Route: 048
     Dates: start: 20211101
  52. MEDROL [Concomitant]
     Active Substance: METHYLPREDNISOLONE
     Indication: Rash
     Dosage: 4 MG AS DIRECTED
     Route: 048
     Dates: start: 20211202, end: 20211208
  53. MEDROL [Concomitant]
     Active Substance: METHYLPREDNISOLONE
     Indication: Rash
     Dosage: 4 MG AS DIRECTED
     Route: 048
     Dates: start: 20211214, end: 20220111

REACTIONS (1)
  - Immune-mediated hepatic disorder [Recovered/Resolved]

NARRATIVE: CASE EVENT DATE: 20220105
